FAERS Safety Report 13216469 (Version 1)
Quarter: 2017Q1

REPORT INFORMATION
  Report Type: Other
  Country: US (occurrence: US)
  Receive Date: 20170210
  Receipt Date: 20170210
  Transmission Date: 20170428
  Serious: Yes (Life-Threatening, Other)
  Sender: FDA-Public Use
  Company Number: US-ACORDA-ACO_123964_2016

PATIENT
  Age: 68 Year
  Sex: Female
  Weight: 73.47 kg

DRUGS (1)
  1. AMPYRA [Suspect]
     Active Substance: DALFAMPRIDINE
     Indication: GAIT DISTURBANCE
     Dosage: 10 MG, BID
     Route: 048

REACTIONS (5)
  - Breast cancer [Unknown]
  - Abdominal discomfort [Unknown]
  - Fatigue [Unknown]
  - Anhedonia [None]
  - Decreased interest [Unknown]

NARRATIVE: CASE EVENT DATE: 2016
